FAERS Safety Report 13433510 (Version 2)
Quarter: 2017Q2

REPORT INFORMATION
  Report Type: Report from Study
  Country: US (occurrence: US)
  Receive Date: 20170412
  Receipt Date: 20170421
  Transmission Date: 20170830
  Serious: Yes (Hospitalization, Other)
  Sender: FDA-Public Use
  Company Number: US-JNJFOC-20161104452

PATIENT
  Age: 44 Year
  Sex: Male

DRUGS (4)
  1. IBRUTINIB [Suspect]
     Active Substance: IBRUTINIB
     Indication: CHRONIC LYMPHOCYTIC LEUKAEMIA
     Route: 048
     Dates: start: 20160712
  2. OBINUTUZUMAB [Suspect]
     Active Substance: OBINUTUZUMAB
     Indication: CHRONIC LYMPHOCYTIC LEUKAEMIA
     Dosage: 100 MG/M2 Q MONTHLY
     Route: 042
     Dates: start: 20160629
  3. FLUDARABINE [Suspect]
     Active Substance: FLUDARABINE PHOSPHATE
     Indication: CHRONIC LYMPHOCYTIC LEUKAEMIA
     Dosage: 25 MG/M2 Q MONTHLY
     Route: 042
     Dates: start: 20160629
  4. CYCLOPHOSPHAMIDE. [Suspect]
     Active Substance: CYCLOPHOSPHAMIDE
     Indication: CHRONIC LYMPHOCYTIC LEUKAEMIA
     Dosage: 250 MG/M2 Q MONTHLY
     Route: 042
     Dates: start: 20160629

REACTIONS (3)
  - Pneumonitis [Recovered/Resolved]
  - Lung infection [Recovered/Resolved]
  - Febrile neutropenia [Not Recovered/Not Resolved]

NARRATIVE: CASE EVENT DATE: 20160713
